FAERS Safety Report 9367062 (Version 1)
Quarter: 2013Q2

REPORT INFORMATION
  Report Type: Spontaneous
  Country: BR (occurrence: BR)
  Receive Date: 20130625
  Receipt Date: 20130625
  Transmission Date: 20140414
  Serious: Yes (Other)
  Sender: FDA-Public Use
  Company Number: BR-BAYER-2013-077667

PATIENT
  Sex: Female

DRUGS (1)
  1. PROMIRA [Suspect]
     Indication: ACUTE SINUSITIS
     Dosage: 1 DF, QD
     Route: 048
     Dates: start: 20130619

REACTIONS (2)
  - Memory impairment [None]
  - Blood pressure increased [None]
